FAERS Safety Report 21166563 (Version 1)
Quarter: 2022Q3

REPORT INFORMATION
  Report Type: Spontaneous
  Country: US (occurrence: None)
  Receive Date: 20220802
  Receipt Date: 20220802
  Transmission Date: 20221026
  Serious: No
  Sender: FDA-Public Use
  Company Number: None

PATIENT
  Sex: Female

DRUGS (5)
  1. STELARA [Suspect]
     Active Substance: USTEKINUMAB
     Indication: Colitis ulcerative
     Dosage: FREQUENCY : ONCE;?
     Route: 042
     Dates: start: 20220517, end: 20220711
  2. STELARA [Suspect]
     Active Substance: USTEKINUMAB
     Indication: Colitis ulcerative
     Dosage: FREQUENCY : ONCE;?
     Route: 042
     Dates: start: 20220517, end: 20220711
  3. PREDNISONE [Concomitant]
     Active Substance: PREDNISONE
  4. BUSPIRONE HCL [Concomitant]
     Active Substance: BUSPIRONE HYDROCHLORIDE
  5. CYMBALTA [Concomitant]
     Active Substance: DULOXETINE HYDROCHLORIDE

REACTIONS (6)
  - Drug ineffective [None]
  - Irritable bowel syndrome [None]
  - Sleep disorder [None]
  - Pain [None]
  - Discomfort [None]
  - Asthenia [None]
